FAERS Safety Report 10125798 (Version 1)
Quarter: 2014Q2

REPORT INFORMATION
  Report Type: Spontaneous
  Country: US (occurrence: US)
  Receive Date: 20140425
  Receipt Date: 20140425
  Transmission Date: 20141212
  Serious: No
  Sender: FDA-Public Use
  Company Number: US-GILEAD-2012-0059469

PATIENT
  Sex: 0

DRUGS (4)
  1. ATRIPLA [Suspect]
     Indication: HIV INFECTION
     Dosage: UNK
     Dates: start: 2001, end: 2009
  2. NORVIR [Concomitant]
     Indication: HIV INFECTION
  3. REYATAZ [Concomitant]
     Indication: HIV INFECTION
  4. EPZICOM [Concomitant]
     Indication: HIV INFECTION

REACTIONS (5)
  - Feeling hot [Unknown]
  - Feeling drunk [Unknown]
  - Mental impairment [Unknown]
  - Depression [Unknown]
  - Abnormal dreams [Unknown]
